FAERS Safety Report 15100032 (Version 1)
Quarter: 2018Q3

REPORT INFORMATION
  Report Type: Spontaneous
  Country: FR (occurrence: FR)
  Receive Date: 20180703
  Receipt Date: 20180703
  Transmission Date: 20181010
  Serious: Yes (Other)
  Sender: FDA-Public Use
  Company Number: FR-ACCORD-069039

PATIENT
  Age: 54 Year
  Sex: Male
  Weight: 92 kg

DRUGS (14)
  1. EMEND [Concomitant]
     Active Substance: APREPITANT
     Dosage: STRENGTH: 80 MG
     Route: 048
  2. LYSANXIA [Concomitant]
     Active Substance: PRAZEPAM
     Dosage: STRENGTH: 10 MG
     Route: 048
  3. VINORELBINE [Suspect]
     Active Substance: VINORELBINE\VINORELBINE TARTRATE
     Indication: BRONCHIAL CARCINOMA
     Dosage: DOSE : 1 UNIT UNSPECIFIED
     Route: 041
     Dates: start: 20161228, end: 20170314
  4. SYMBICORT [Concomitant]
     Active Substance: BUDESONIDE\FORMOTEROL FUMARATE DIHYDRATE
     Route: 055
  5. SOLUPRED (PREDNISOLONE SODIUM METAZOATE) [Concomitant]
     Active Substance: PREDNISOLONE SODIUM METAZOATE
     Dosage: STRENGTH: 20 MG
     Route: 048
  6. TERCIAN [Concomitant]
     Active Substance: CYAMEMAZINE
     Dosage: STRENGTH: 25 MG
     Route: 048
  7. RISPERDAL [Concomitant]
     Active Substance: RISPERIDONE
     Dosage: STRENGTH: 4 MG
     Route: 048
  8. NICOPATCH [Concomitant]
     Active Substance: NICOTINE
     Route: 062
  9. OLANZAPINE. [Concomitant]
     Active Substance: OLANZAPINE
     Route: 048
  10. CISPLATIN ACCORD [Suspect]
     Active Substance: CISPLATIN
     Indication: BRONCHIAL CARCINOMA
     Dosage: STRENGTH: 1 MG/ML, DOSE: 1 UNIT UNSPECIFIED, SELON PROTOCOLE
     Route: 041
     Dates: start: 20161228, end: 20170314
  11. TRAMADOL. [Concomitant]
     Active Substance: TRAMADOL
     Route: 048
  12. PAROXETINE. [Concomitant]
     Active Substance: PAROXETINE
     Route: 048
  13. PRIMPERAN [Concomitant]
     Active Substance: METOCLOPRAMIDE HYDROCHLORIDE
     Dosage: STRENGTH: 10 MG
     Route: 048
  14. CELEBREX [Concomitant]
     Active Substance: CELECOXIB
     Route: 048

REACTIONS (3)
  - Dyspnoea [Recovered/Resolved]
  - Nausea [Recovered/Resolved]
  - Agranulocytosis [Recovered/Resolved]

NARRATIVE: CASE EVENT DATE: 20170321
